FAERS Safety Report 14390152 (Version 1)
Quarter: 2018Q1

REPORT INFORMATION
  Report Type: Report from Study
  Country: FR (occurrence: FR)
  Receive Date: 20180116
  Receipt Date: 20180116
  Transmission Date: 20180509
  Serious: Yes (Death)
  Sender: FDA-Public Use
  Company Number: FR-ROCHE-2031484

PATIENT
  Age: 56 Year
  Sex: Male
  Weight: 83.9 kg

DRUGS (7)
  1. OBINUTUZUMAB. [Suspect]
     Active Substance: OBINUTUZUMAB
     Indication: MANTLE CELL LYMPHOMA
     Dosage: DATE OF LAST DOSE PRIOR TO SAE: 15/NOV/2017
     Route: 042
     Dates: start: 20170807, end: 20171116
  2. CARMUSTINE [Concomitant]
     Active Substance: CARMUSTINE
     Indication: NON-HODGKIN^S LYMPHOMA
     Route: 065
     Dates: start: 20171115, end: 20171122
  3. OXALIPLATIN. [Concomitant]
     Active Substance: OXALIPLATIN
     Indication: MANTLE CELL LYMPHOMA
     Route: 065
     Dates: start: 20170807, end: 20171012
  4. ETOPOSIDE. [Concomitant]
     Active Substance: ETOPOSIDE
     Indication: NON-HODGKIN^S LYMPHOMA
     Route: 065
     Dates: start: 20171115, end: 20171122
  5. DEXAMETHASONE. [Concomitant]
     Active Substance: DEXAMETHASONE
     Indication: MANTLE CELL LYMPHOMA
     Route: 065
     Dates: start: 20170807, end: 20171012
  6. MELPHALAN. [Concomitant]
     Active Substance: MELPHALAN
     Indication: NON-HODGKIN^S LYMPHOMA
     Route: 065
     Dates: start: 20171115, end: 20171122
  7. CYTARABINE. [Concomitant]
     Active Substance: CYTARABINE
     Indication: NON-HODGKIN^S LYMPHOMA
     Route: 065
     Dates: start: 20171115, end: 20171122

REACTIONS (1)
  - Myocardial infarction [Fatal]

NARRATIVE: CASE EVENT DATE: 20171122
